FAERS Safety Report 4740754-8 (Version None)
Quarter: 2005Q3

REPORT INFORMATION
  Report Type: 
  Country: None (occurrence: None)
  Receive Date: 20050809
  Receipt Date: 20050809
  Transmission Date: 20060218
  Serious: Yes (Death)
  Sender: FDA-Public Use
  Company Number: None

PATIENT
  Age: 79 Year
  Sex: Female
  Weight: 129.2752 kg

DRUGS (4)
  1. NOREPINEPHRINE [Suspect]
     Indication: CARDIAC FAILURE CONGESTIVE
     Dosage: 4 MG /4 ML IV
     Route: 042
     Dates: start: 20050613
  2. NOREPINEPHRINE [Suspect]
     Indication: DIURETIC THERAPY
     Dosage: 4 MG /4 ML IV
     Route: 042
     Dates: start: 20050613
  3. XANAX [Concomitant]
  4. TYLENOL [Concomitant]

REACTIONS (5)
  - ACUTE MYOCARDIAL INFARCTION [None]
  - ATRIAL FIBRILLATION [None]
  - PULMONARY EMBOLISM [None]
  - PULMONARY OEDEMA [None]
  - WRONG DRUG ADMINISTERED [None]
